FAERS Safety Report 22651311 (Version 1)
Quarter: 2023Q2

REPORT INFORMATION
  Report Type: Report from Study
  Country: US (occurrence: US)
  Receive Date: 20230628
  Receipt Date: 20230628
  Transmission Date: 20230721
  Serious: Yes (Death)
  Sender: FDA-Public Use
  Company Number: US-PFIZER INC-PV202300112662

PATIENT
  Age: 53 Year
  Sex: Male

DRUGS (2)
  1. LORBRENA [Suspect]
     Active Substance: LORLATINIB
     Indication: Respiratory tract neoplasm
     Dosage: 75 MG, 1X/DAY ((3-25 MG TABLETS) WITH OR WITHOUT FOOD)
     Route: 048
     Dates: start: 202305
  2. LORBRENA [Suspect]
     Active Substance: LORLATINIB
     Indication: Brain neoplasm

REACTIONS (1)
  - Death [Fatal]

NARRATIVE: CASE EVENT DATE: 20230620
